FAERS Safety Report 12248911 (Version 1)
Quarter: 2016Q2

REPORT INFORMATION
  Report Type: Spontaneous
  Country: US (occurrence: None)
  Receive Date: 20160407
  Receipt Date: 20160407
  Transmission Date: 20160815
  Serious: No
  Sender: FDA-Public Use
  Company Number: None

PATIENT
  Sex: Female

DRUGS (3)
  1. AMOXICILLIN. [Suspect]
     Active Substance: AMOXICILLIN
  2. GLIPIZIDE. [Suspect]
     Active Substance: GLIPIZIDE
  3. METFORMIN [Suspect]
     Active Substance: METFORMIN HYDROCHLORIDE

REACTIONS (6)
  - Blood glucose increased [None]
  - Thyroid disorder [None]
  - Somnolence [None]
  - Fatigue [None]
  - Blood glucose decreased [None]
  - Sinusitis [None]
